FAERS Safety Report 7365086-3 (Version None)
Quarter: 2011Q1

REPORT INFORMATION
  Report Type: 
  Country: None (occurrence: None)
  Receive Date: 20110321
  Receipt Date: 20110317
  Transmission Date: 20110831
  Serious: Yes (Death)
  Sender: FDA-Public Use
  Company Number: US-ABBOTT-09P-163-0560144-00

PATIENT
  Sex: Male
  Weight: 99.88 kg

DRUGS (27)
  1. VYTORIN [Concomitant]
     Indication: BLOOD CHOLESTEROL INCREASED
     Dosage: 10/40 MG PER DAY
     Dates: start: 20070911
  2. CARVEDILOL [Concomitant]
     Indication: CARDIAC DISORDER
     Route: 048
     Dates: start: 20080214
  3. PACERONE [Concomitant]
     Indication: CARDIAC DISORDER
     Dates: start: 20080414
  4. NITROGLYCERIN [Concomitant]
     Indication: PRODUCT USED FOR UNKNOWN INDICATION
  5. KLOR-CON [Concomitant]
     Indication: BLOOD POTASSIUM DECREASED
     Route: 048
     Dates: start: 20070911, end: 20080121
  6. ISOSORBIDE MONONITRATE [Concomitant]
     Indication: CARDIAC DISORDER
     Route: 048
     Dates: start: 20070911
  7. COREG [Concomitant]
     Indication: PRODUCT USED FOR UNKNOWN INDICATION
     Dates: start: 20070911
  8. REGULAR [Concomitant]
     Indication: PRODUCT USED FOR UNKNOWN INDICATION
     Dates: start: 20080121
  9. METOCLOPRAMIDE [Concomitant]
     Indication: NAUSEA
     Route: 048
     Dates: start: 20080414
  10. ALLOPURINOL [Concomitant]
     Indication: GOUT
     Route: 048
     Dates: start: 20080414
  11. ZOLOPIDEN [Concomitant]
     Indication: INSOMNIA
     Route: 048
  12. APIDRA INSULIN PUMP [Concomitant]
     Indication: TYPE 2 DIABETES MELLITUS
     Dates: start: 20070911
  13. COUMADIN [Concomitant]
     Indication: PRODUCT USED FOR UNKNOWN INDICATION
     Dosage: 3+ 4S
     Dates: start: 20070911
  14. ZEMPLAR [Suspect]
     Indication: RENAL DISORDER
     Route: 048
     Dates: start: 20080128
  15. NIASPAN [Concomitant]
     Indication: BLOOD CHOLESTEROL INCREASED
     Route: 048
     Dates: start: 20070911
  16. SPIRONOLACTONE [Concomitant]
     Indication: PRODUCT USED FOR UNKNOWN INDICATION
     Route: 048
  17. AMIODARONE HCL [Concomitant]
     Indication: PRODUCT USED FOR UNKNOWN INDICATION
     Dates: start: 20080121
  18. NITROLINGUAL [Concomitant]
     Indication: PRODUCT USED FOR UNKNOWN INDICATION
     Dates: start: 20080121
  19. FUROSEMIDE [Concomitant]
     Indication: FLUID IMBALANCE
     Route: 048
     Dates: start: 20070911
  20. ZOLPICHEM [Concomitant]
     Indication: PRODUCT USED FOR UNKNOWN INDICATION
     Dates: start: 20080414
  21. METOLAZONE [Concomitant]
     Indication: PRODUCT USED FOR UNKNOWN INDICATION
     Dates: start: 20080414
  22. FISH OIL [Concomitant]
     Indication: BLOOD CHOLESTEROL INCREASED
     Route: 048
     Dates: start: 20080121
  23. KLOR-CON [Concomitant]
     Dosage: 1.5 X 5
     Dates: start: 20080121, end: 20080512
  24. WARFARIN SODIUM [Concomitant]
     Indication: THROMBOSIS
     Dosage: 3 MG OR 4 MG
     Route: 048
     Dates: start: 20080414
  25. ASPIRIN [Concomitant]
     Indication: PRODUCT USED FOR UNKNOWN INDICATION
     Route: 048
     Dates: start: 20070911
  26. COLCHICINE [Concomitant]
     Indication: GOUT
     Dates: start: 20080414
  27. METOLAZONE [Concomitant]
     Indication: FLUID IMBALANCE
     Route: 048
     Dates: start: 20080121

REACTIONS (4)
  - ISCHAEMIC CARDIOMYOPATHY [None]
  - INFLUENZA LIKE ILLNESS [None]
  - SUDDEN DEATH [None]
  - DIABETES MELLITUS [None]
